FAERS Safety Report 19872665 (Version 1)
Quarter: 2021Q3

REPORT INFORMATION
  Report Type: Other
  Country: GB (occurrence: GB)
  Receive Date: 20210923
  Receipt Date: 20210923
  Transmission Date: 20211014
  Serious: Yes (Disabling)
  Sender: FDA-Public Use
  Company Number: GB-STRIDES ARCOLAB LIMITED-2021SP027977

PATIENT
  Age: 28 Year
  Sex: Female
  Weight: 60 kg

DRUGS (4)
  1. DOXYCYCLINE. [Concomitant]
     Active Substance: DOXYCYCLINE
     Indication: PRODUCT USED FOR UNKNOWN INDICATION
     Dosage: UNK
     Route: 065
  2. PREDNISOLONE. [Suspect]
     Active Substance: PREDNISOLONE
     Indication: ECZEMA
     Dosage: 30 MILLIGRAM, PER DAY
     Route: 048
  3. FLUCLOXACILLIN [Concomitant]
     Active Substance: FLUCLOXACILLIN
     Indication: PRODUCT USED FOR UNKNOWN INDICATION
     Dosage: UNK
     Route: 065
  4. CYCLOSPORINE. [Suspect]
     Active Substance: CYCLOSPORINE
     Indication: ECZEMA
     Dosage: UNK
     Route: 065

REACTIONS (15)
  - Erythema [Recovered/Resolved]
  - Burning sensation [Recovered/Resolved]
  - Pruritus [Recovered/Resolved]
  - Pain in extremity [Unknown]
  - Off label use [Unknown]
  - Temperature regulation disorder [Recovered/Resolved]
  - Tremor [Unknown]
  - Dry skin [Unknown]
  - Skin exfoliation [Recovered/Resolved]
  - Skin atrophy [Recovered/Resolved]
  - Feeling cold [Unknown]
  - Incorrect product administration duration [Unknown]
  - Insomnia [Unknown]
  - Skin weeping [Recovered/Resolved]
  - Neuralgia [Recovered/Resolved]
